FAERS Safety Report 15366932 (Version 3)
Quarter: 2018Q4

REPORT INFORMATION
  Report Type: Report from Study
  Country: KR (occurrence: KR)
  Receive Date: 20180910
  Receipt Date: 20181029
  Transmission Date: 20190204
  Serious: Yes (Hospitalization, Other)
  Sender: FDA-Public Use
  Company Number: KR-ACTELION-A-CH2018-177876

PATIENT
  Age: 62 Year
  Sex: Female
  Weight: 48.3 kg

DRUGS (48)
  1. UPTRAVI [Suspect]
     Active Substance: SELEXIPAG
     Dosage: 200 MCG, QD
     Route: 048
     Dates: start: 20180617
  2. DIGOSIN [Concomitant]
     Active Substance: DIGOXIN
     Dosage: .50 TBS, QD
     Route: 048
     Dates: end: 20180524
  3. WARFARIN [Suspect]
     Active Substance: WARFARIN
     Dosage: 4 MG, QD
     Route: 048
     Dates: start: 20180404, end: 20180426
  4. ZYDENA [Concomitant]
     Active Substance: UDENAFIL
     Indication: PULMONARY ARTERIAL HYPERTENSION
     Dosage: 100 MG, UNK
     Dates: start: 20180402, end: 20180611
  5. SODIUM BICARBONATE. [Concomitant]
     Active Substance: SODIUM BICARBONATE
     Dosage: 91 ML, QD
     Route: 042
     Dates: start: 20180528, end: 20180528
  6. DOPAMIX [Concomitant]
     Dosage: 2 ML/HR, QD
     Route: 042
     Dates: start: 20180622, end: 20180622
  7. NORPIN [Concomitant]
     Dosage: 0.02 ?G/KG, QD
     Route: 042
     Dates: start: 20180618, end: 20180619
  8. UPTRAVI [Suspect]
     Active Substance: SELEXIPAG
     Dosage: 200 MCG, QID
     Route: 048
     Dates: start: 20180126, end: 20180222
  9. PLAVIX [Concomitant]
     Active Substance: CLOPIDOGREL BISULFATE
     Dosage: 75 MG, QD
     Route: 048
     Dates: start: 20180518, end: 20180526
  10. CORDARONE [Concomitant]
     Active Substance: AMIODARONE HYDROCHLORIDE
     Dosage: 800 MG, QD
     Route: 048
     Dates: start: 20180610, end: 20180611
  11. CORDARONE [Concomitant]
     Active Substance: AMIODARONE HYDROCHLORIDE
     Dosage: 555 MG, QD
     Route: 042
     Dates: start: 20180611, end: 20180611
  12. UPTRAVI [Suspect]
     Active Substance: SELEXIPAG
     Indication: PULMONARY ARTERIAL HYPERTENSION
     Dosage: 1200 MCG, BID
     Route: 048
     Dates: start: 20180330, end: 20180507
  13. LASIX [Concomitant]
     Active Substance: FUROSEMIDE
     Dosage: 5 MG/HR, QD
     Route: 042
     Dates: start: 20180604, end: 20180608
  14. FLUCARE [Concomitant]
     Dosage: 2400 MG, QD
     Route: 048
     Dates: start: 20180528, end: 20180530
  15. CORDARONE [Concomitant]
     Active Substance: AMIODARONE HYDROCHLORIDE
     Dosage: 800 MG, QD
     Route: 048
     Dates: start: 20180613
  16. ALDACTONE [Concomitant]
     Active Substance: SPIRONOLACTONE
     Dosage: 25 MG, QD
     Route: 048
     Dates: start: 20180427, end: 20180604
  17. DOPAMIX [Concomitant]
     Dosage: 9 ML/HR, QD
     Route: 042
     Dates: start: 20180613, end: 20180613
  18. FEBURIC [Concomitant]
     Active Substance: FEBUXOSTAT
     Dosage: 40 MG, QD
     Route: 048
     Dates: start: 20180609, end: 20180614
  19. DICHLOZID [Concomitant]
     Dosage: 12.5 MG, QD
     Route: 048
     Dates: start: 20180622
  20. ALDACTONE [Concomitant]
     Active Substance: SPIRONOLACTONE
     Dosage: 25 MG, QD
     Route: 048
     Dates: start: 20180615
  21. UPTRAVI [Suspect]
     Active Substance: SELEXIPAG
     Dosage: 100 MCG, QD
     Route: 048
     Dates: start: 20180609, end: 20180616
  22. LASIX [Concomitant]
     Active Substance: FUROSEMIDE
     Dosage: 3 DF, QD
     Route: 048
     Dates: start: 20180404, end: 20180604
  23. LASIX [Concomitant]
     Active Substance: FUROSEMIDE
     Dosage: 2 DF, QD
     Route: 048
     Dates: start: 20180619
  24. SPIRONOLACTONE. [Concomitant]
     Active Substance: SPIRONOLACTONE
     Dosage: 25 MG, QD
     Route: 048
     Dates: start: 20180427, end: 20180604
  25. SPIRONOLACTONE. [Concomitant]
     Active Substance: SPIRONOLACTONE
     Dosage: 25 MG, QD
     Route: 048
     Dates: start: 20180615
  26. DOPAMIX [Concomitant]
     Dosage: 7 ML/HR, QD
     Route: 042
     Dates: start: 20180614, end: 20180614
  27. DOPAMIX [Concomitant]
     Dosage: 7 ML/HR, QD
     Route: 042
     Dates: start: 20180620, end: 20180620
  28. K-CONTIN CONTINUS [Concomitant]
     Dosage: 2 DF, BID
     Route: 048
     Dates: start: 20180605, end: 20180606
  29. CORDARONE [Concomitant]
     Active Substance: AMIODARONE HYDROCHLORIDE
     Dosage: 150 MG, QD
     Route: 042
     Dates: start: 20180608, end: 20180608
  30. UPTRAVI [Suspect]
     Active Substance: SELEXIPAG
     Dosage: 200 MCG, BID
     Route: 048
     Dates: start: 20180111, end: 20180125
  31. SYNTHYROXINE [Concomitant]
     Active Substance: LEVOTHYROXINE SODIUM
     Dosage: 25 ?G, UNK
     Route: 048
  32. DOPAMIX [Concomitant]
     Dosage: 84 ML, QD
     Route: 042
     Dates: start: 20180621, end: 20180621
  33. TRESTAN [Concomitant]
     Dosage: 2 DF, QD
     Route: 048
     Dates: start: 20180610
  34. OPSUMIT [Suspect]
     Active Substance: MACITENTAN
     Indication: PULMONARY ARTERIAL HYPERTENSION
     Dosage: 10 MG, QD
     Route: 048
     Dates: start: 20180111
  35. UPTRAVI [Suspect]
     Active Substance: SELEXIPAG
     Dosage: 1200 MCG, BID
     Route: 048
     Dates: start: 20180223, end: 20180308
  36. PAHTENSION [Concomitant]
     Indication: PULMONARY ARTERIAL HYPERTENSION
     Dosage: 60 MG, TID
     Route: 048
     Dates: end: 20180401
  37. WARFARIN [Suspect]
     Active Substance: WARFARIN
     Dosage: 4.0 MG, QD
     Route: 048
     Dates: start: 20180223, end: 20180830
  38. WARFARIN [Suspect]
     Active Substance: WARFARIN
     Dosage: 4.5 MG, QD
     Route: 048
     Dates: start: 20180402, end: 20180403
  39. WARFARIN [Suspect]
     Active Substance: WARFARIN
     Dosage: 3.5 MG, QD
     Route: 048
     Dates: start: 20180427, end: 20180507
  40. CIALIS [Concomitant]
     Active Substance: TADALAFIL
     Indication: PULMONARY ARTERIAL HYPERTENSION
     Dosage: 40 MG, QD
     Route: 048
     Dates: start: 20180612
  41. NORPIN [Concomitant]
     Dosage: 0.05 ?G/KG, QD
     Route: 042
     Dates: start: 20180613, end: 20180617
  42. MACPERAN [Concomitant]
     Active Substance: METOCLOPRAMIDE HYDROCHLORIDE
     Indication: NAUSEA
     Dosage: 3 DF, QD
     Route: 048
     Dates: start: 20180112, end: 20180507
  43. UPTRAVI [Suspect]
     Active Substance: SELEXIPAG
     Dosage: 1600 MCG, QD
     Route: 048
     Dates: start: 20180309, end: 20180329
  44. LASIX [Concomitant]
     Active Substance: FUROSEMIDE
     Dosage: 2.5 DF, QD
     Route: 048
     Dates: start: 20180110, end: 20180329
  45. WARFARIN [Suspect]
     Active Substance: WARFARIN
     Indication: PRODUCT USED FOR UNKNOWN INDICATION
     Dosage: 4.5 MG, QD
     Route: 048
     Dates: end: 20180222
  46. DOPAMIX [Concomitant]
     Dosage: 7 ML/HR, QD
     Route: 042
     Dates: start: 20180604, end: 20180612
  47. DOPAMIX [Concomitant]
     Dosage: 9 ML/HR, QD
     Route: 042
     Dates: start: 20180615, end: 20180619
  48. CORDARONE [Concomitant]
     Active Substance: AMIODARONE HYDROCHLORIDE
     Dosage: 870 MG, QD
     Route: 042
     Dates: start: 20180609, end: 20180609

REACTIONS (15)
  - Dyspnoea [Recovered/Resolved]
  - Orthopnoea [Recovered/Resolved]
  - Blood pressure decreased [Recovered/Resolved]
  - Headache [Not Recovered/Not Resolved]
  - Right ventricular failure [Recovered/Resolved]
  - Pulmonary hypertension [Recovered/Resolved]
  - Haematochezia [Recovered/Resolved]
  - International normalised ratio increased [Unknown]
  - Pleural effusion [Recovered/Resolved]
  - Melaena [Not Recovered/Not Resolved]
  - Enterocolitis [Recovered/Resolved]
  - Oedema [Recovered/Resolved]
  - Pyrexia [Recovered/Resolved]
  - Diarrhoea [Not Recovered/Not Resolved]
  - Pulmonary embolism [Recovered/Resolved]

NARRATIVE: CASE EVENT DATE: 2018
